FAERS Safety Report 6130637-3 (Version None)
Quarter: 2009Q1

REPORT INFORMATION
  Report Type: 
  Country: None (occurrence: None)
  Receive Date: 20090323
  Receipt Date: 20090305
  Transmission Date: 20090719
  Serious: Yes (Hospitalization)
  Sender: FDA-Public Use
  Company Number: 8043975

PATIENT
  Age: 11 Year
  Sex: Female

DRUGS (6)
  1. PREDNISOLONE [Suspect]
     Dosage: PO
     Route: 048
  2. CYCLOSPORINE [Suspect]
  3. MIZORIBINE [Concomitant]
  4. TACROLIMUS [Concomitant]
  5. CYCLOPHOSPHAMIDE [Concomitant]
  6. METHYLPREDNISOLONE 4MG TAB [Suspect]

REACTIONS (9)
  - CATARACT [None]
  - FOCAL SEGMENTAL GLOMERULOSCLEROSIS [None]
  - NEPHROTIC SYNDROME [None]
  - OBESITY [None]
  - OSTEOPOROSIS [None]
  - PERITONEAL DIALYSIS [None]
  - QUALITY OF LIFE DECREASED [None]
  - RENAL FAILURE CHRONIC [None]
  - THERAPEUTIC AGENT TOXICITY [None]
